FAERS Safety Report 25353444 (Version 2)
Quarter: 2025Q2

REPORT INFORMATION
  Report Type: Report from Study
  Country: US (occurrence: US)
  Receive Date: 20250523
  Receipt Date: 20250612
  Transmission Date: 20250716
  Serious: Yes (Life-Threatening, Other)
  Sender: ROCHE
  Company Number: US-ROCHE-10000292798

PATIENT
  Age: 30 Year
  Sex: Female
  Weight: 65.77 kg

DRUGS (2)
  1. OCREVUS [Suspect]
     Active Substance: OCRELIZUMAB
     Indication: Relapsing multiple sclerosis
     Dosage: DATE OF SERVICE: 07-DEC-2024
     Route: 042
     Dates: start: 20241125
  2. BACLOFEN [Concomitant]
     Active Substance: BACLOFEN
     Route: 048
     Dates: start: 202310

REACTIONS (5)
  - Anaphylactic shock [Unknown]
  - Throat tightness [Recovered/Resolved]
  - Dyspnoea [Recovered/Resolved]
  - Pruritus [Recovered/Resolved]
  - Band sensation [Recovered/Resolved]

NARRATIVE: CASE EVENT DATE: 20241125
